FAERS Safety Report 8320427-5 (Version None)
Quarter: 2012Q2

REPORT INFORMATION
  Report Type: 
  Country: None (occurrence: None)
  Receive Date: 20120426
  Receipt Date: 20120426
  Transmission Date: 20120825
  Serious: Yes (Disabling, Other)
  Sender: FDA-Public Use
  Company Number: None

PATIENT
  Age: 73 Year
  Sex: Female
  Weight: 68.9467 kg

DRUGS (2)
  1. FOSAMAX [Suspect]
     Indication: OSTEOPENIA
     Dosage: 1/4 70 MG IN 2007 LAB ONCE WEEKLY ORAL
     Route: 048
     Dates: start: 20010101, end: 20080101
  2. ACTONEL [Concomitant]

REACTIONS (2)
  - GROIN PAIN [None]
  - ARTHROPATHY [None]
